FAERS Safety Report 14134700 (Version 2)
Quarter: 2019Q2

REPORT INFORMATION
  Report Type: Spontaneous
  Country: MY (occurrence: MY)
  Receive Date: 20171027
  Receipt Date: 20190524
  Transmission Date: 20190711
  Serious: Yes (Death, Life-Threatening, Hospitalization, Other)
  Sender: FDA-Public Use
  Company Number: MY-BAUSCH-BL-2017-029995

PATIENT
  Age: 56 Year
  Sex: Male

DRUGS (1)
  1. PREDNISOLONE. [Suspect]
     Active Substance: PREDNISOLONE
     Indication: PEMPHIGOID
     Route: 048

REACTIONS (7)
  - Septic shock [Unknown]
  - Strongyloidiasis [Unknown]
  - Iron deficiency anaemia [Unknown]
  - Pulmonary haemorrhage [Fatal]
  - Acute respiratory distress syndrome [Fatal]
  - Neutrophilia [Unknown]
  - Pneumonia klebsiella [Unknown]
